FAERS Safety Report 7670047-0 (Version None)
Quarter: 2011Q3

REPORT INFORMATION
  Report Type: 
  Country: None (occurrence: None)
  Receive Date: 20110808
  Receipt Date: 20110805
  Transmission Date: 20111222
  Serious: Yes (Life-Threatening, Other)
  Sender: FDA-Public Use
  Company Number: JP-ABBOTT-11P-087-0835336-00

PATIENT
  Sex: Female
  Weight: 51 kg

DRUGS (8)
  1. HUMIRA [Suspect]
     Dates: start: 20110309, end: 20110608
  2. HUMIRA [Suspect]
     Indication: PSORIATIC ARTHROPATHY
     Route: 058
     Dates: start: 20110117, end: 20110117
  3. ISONIAZID [Concomitant]
     Indication: ANTIBIOTIC PROPHYLAXIS
     Route: 048
  4. HUMIRA [Suspect]
     Dates: start: 20110622, end: 20110622
  5. LACTOMIN [Concomitant]
     Indication: ENTEROCOLITIS
     Route: 048
  6. HUMIRA [Suspect]
     Indication: PUSTULAR PSORIASIS
     Dates: start: 20110131, end: 20110214
  7. ALENDRONATE SODIUM [Concomitant]
     Indication: OSTEOPOROSIS
     Route: 048
  8. SCOPOLAMINE BUTYLBROMIDE [Concomitant]
     Indication: GASTRITIS
     Route: 048

REACTIONS (9)
  - LARYNGEAL OEDEMA [None]
  - ANAPHYLACTOID REACTION [None]
  - URTICARIA [None]
  - DYSPHONIA [None]
  - OXYGEN SATURATION DECREASED [None]
  - DEPRESSED LEVEL OF CONSCIOUSNESS [None]
  - DYSPNOEA [None]
  - DYSPNOEA EXERTIONAL [None]
  - RASH GENERALISED [None]
